FAERS Safety Report 7278190-5 (Version None)
Quarter: 2011Q1

REPORT INFORMATION
  Report Type: 
  Country: None (occurrence: None)
  Receive Date: 20110207
  Receipt Date: 20110125
  Transmission Date: 20110831
  Serious: Yes (Hospitalization, Disabling)
  Sender: FDA-Public Use
  Company Number: B0696326A

PATIENT
  Sex: Female

DRUGS (1)
  1. AVANDAMET [Suspect]
     Route: 048
     Dates: start: 20040101, end: 20100801

REACTIONS (4)
  - HYPERTENSIVE HEART DISEASE [None]
  - TACHYCARDIA [None]
  - FATIGUE [None]
  - CARDIAC FAILURE [None]
